FAERS Safety Report 12678285 (Version 1)
Quarter: 2016Q3

REPORT INFORMATION
  Report Type: Spontaneous
  Country: NZ (occurrence: NZ)
  Receive Date: 20160823
  Receipt Date: 20160823
  Transmission Date: 20161109
  Serious: Yes (Other)
  Sender: FDA-Public Use
  Company Number: NZ-MYLANLABS-2016M1034271

PATIENT

DRUGS (2)
  1. ZYPINE [Suspect]
     Active Substance: OLANZAPINE
     Indication: SCHIZOPHRENIA
     Dosage: 1 DF, QD
     Route: 048
  2. ZYPINE [Suspect]
     Active Substance: OLANZAPINE
     Dosage: 2 DF, UNK

REACTIONS (1)
  - Drug ineffective [Not Recovered/Not Resolved]
